FAERS Safety Report 5445125-7 (Version None)
Quarter: 2007Q3

REPORT INFORMATION
  Report Type: 
  Country: None (occurrence: None)
  Receive Date: 20070730
  Receipt Date: 20070329
  Transmission Date: 20080115
  Serious: Yes (Other)
  Sender: FDA-Public Use
  Company Number: 239160

PATIENT
  Age: 51 Year
  Sex: Female

DRUGS (6)
  1. RITUXAN [Suspect]
     Indication: RHEUMATOID ARTHRITIS
     Dosage: 2/MONTH, INTRAVENOUS
     Route: 042
     Dates: start: 20070201
  2. METHOTREXATE [Concomitant]
  3. SULFASALAZINE (SULFSALAZINE) [Concomitant]
  4. EFFEXOR XR (VENLAFAXINE HYDOCHLORIDE) [Concomitant]
  5. FLONASE [Concomitant]
  6. ALLEGRA-D (FEXOFENADINE HYDROCHLORIDE, PSEUDOEPHEDRINE HYDROCHLORIDE) [Concomitant]

REACTIONS (1)
  - INFECTION [None]
